FAERS Safety Report 5421973-4 (Version None)
Quarter: 2007Q3

REPORT INFORMATION
  Report Type: 
  Country: None (occurrence: None)
  Receive Date: 20070822
  Receipt Date: 20070814
  Transmission Date: 20080115
  Serious: Yes (Other)
  Sender: FDA-Public Use
  Company Number: PHEH2007US11181

PATIENT
  Sex: Female

DRUGS (2)
  1. ZELNORM [Suspect]
     Dosage: UNK, QD
     Dates: start: 20060201, end: 20061201
  2. ZELNORM [Suspect]
     Dosage: UNK, UNK
     Dates: start: 20070101, end: 20070301

REACTIONS (8)
  - CARDIAC DISORDER [None]
  - CATHETERISATION CARDIAC ABNORMAL [None]
  - CEREBROVASCULAR ACCIDENT [None]
  - CHEST PAIN [None]
  - DRUG INEFFECTIVE [None]
  - DYSPNOEA [None]
  - GASTROINTESTINAL DISORDER [None]
  - HYPOTENSION [None]
